FAERS Safety Report 14614130 (Version 2)
Quarter: 2018Q3

REPORT INFORMATION
  Report Type: Spontaneous
  Country: US (occurrence: US)
  Receive Date: 20180308
  Receipt Date: 20180905
  Transmission Date: 20181010
  Serious: Yes (Other)
  Sender: FDA-Public Use
  Company Number: US-BAYER-2018-045024

PATIENT
  Age: 82 Year
  Sex: Female
  Weight: 68.03 kg

DRUGS (2)
  1. ALEVE PM [Suspect]
     Active Substance: DIPHENHYDRAMINE HYDROCHLORIDE\NAPROXEN SODIUM
     Dosage: UNK
     Route: 048
     Dates: start: 20180216, end: 20180219
  2. LISINOPRIL. [Concomitant]
     Active Substance: LISINOPRIL

REACTIONS (14)
  - Head injury [None]
  - Pain in extremity [Not Recovered/Not Resolved]
  - Fall [Unknown]
  - Scar [Unknown]
  - Hand fracture [Unknown]
  - Contusion [Not Recovered/Not Resolved]
  - Contusion [Not Recovered/Not Resolved]
  - Face injury [Unknown]
  - Dizziness [Unknown]
  - Contusion [Unknown]
  - Peripheral swelling [Not Recovered/Not Resolved]
  - Eye injury [Unknown]
  - Contusion [Unknown]
  - Bone disorder [Unknown]

NARRATIVE: CASE EVENT DATE: 20180219
